FAERS Safety Report 6447378-5 (Version None)
Quarter: 2009Q4

REPORT INFORMATION
  Report Type: 
  Country: None (occurrence: None)
  Receive Date: 20091116
  Receipt Date: 20091105
  Transmission Date: 20100525
  Serious: Yes (Life-Threatening)
  Sender: FDA-Public Use
  Company Number: 2008JP002971

PATIENT
  Age: 79 Year
  Sex: Female
  Weight: 52 kg

DRUGS (9)
  1. PROGRAF [Suspect]
     Indication: RHEUMATOID ARTHRITIS
     Dosage: 0.5 MG, UID/QD, ORAL; 1 MG, UID/QD, ORAL; 1.5 MG,
     Route: 048
     Dates: start: 20080218, end: 20080302
  2. PROGRAF [Suspect]
     Indication: RHEUMATOID ARTHRITIS
     Dosage: 0.5 MG, UID/QD, ORAL; 1 MG, UID/QD, ORAL; 1.5 MG,
     Route: 048
     Dates: start: 20080303, end: 20080316
  3. PROGRAF [Suspect]
     Indication: RHEUMATOID ARTHRITIS
     Dosage: 0.5 MG, UID/QD, ORAL; 1 MG, UID/QD, ORAL; 1.5 MG,
     Route: 048
     Dates: start: 20080317, end: 20080611
  4. ENBREL [Suspect]
     Indication: RHEUMATOID ARTHRITIS
     Dosage: 25 MG, WEEKLY, SUBCUTANEOUS
     Route: 058
     Dates: start: 20070820, end: 20080601
  5. PREDNISOLONE [Suspect]
     Dosage: 5 MG, UID/QD,
     Dates: start: 20070723, end: 20080612
  6. BONALON      (ALENDRONATE SODIUM) [Concomitant]
  7. VOLTAREN     (CODEINE PHOSPHATE) FORMULATION UNKNOWN [Concomitant]
  8. METHYCOBAL        (CYANOCOBALAMIN) FORMULATION UNKNOWN [Concomitant]
  9. GASLON N   (IRSOGLADINE MALEATE) FORMULATION UNKNOWN [Concomitant]

REACTIONS (2)
  - HYPERKALAEMIA [None]
  - PNEUMOCYSTIS JIROVECI PNEUMONIA [None]
